FAERS Safety Report 9229960 (Version 1)
Quarter: 2013Q1

REPORT INFORMATION
  Report Type: Spontaneous
  Country: US (occurrence: None)
  Receive Date: 20121022
  Receipt Date: 20121022
  Transmission Date: 20140127
  Serious: Yes (Death)
  Sender: FDA-Public Use
  Company Number: 2012POI057500065

PATIENT
  Age: 83 Year
  Sex: Female

DRUGS (1)
  1. DARVOCET-N [Suspect]
     Indication: PAIN IN EXTREMITY
     Route: 048
     Dates: start: 201009, end: 201010

REACTIONS (1)
  - Myocardial infarction [None]
